FAERS Safety Report 22645054 (Version 1)
Quarter: 2023Q2

REPORT INFORMATION
  Report Type: Spontaneous
  Country: US (occurrence: US)
  Receive Date: 20230627
  Receipt Date: 20230627
  Transmission Date: 20230721
  Serious: Yes (Other)
  Sender: FDA-Public Use
  Company Number: US-MLMSERVICE-20230608-4336005-1

PATIENT
  Age: 13 Year
  Sex: Female

DRUGS (9)
  1. LEVETIRACETAM [Suspect]
     Active Substance: LEVETIRACETAM
     Indication: Epilepsy
     Dosage: UNK (UP TO 2500 MG)
     Route: 065
     Dates: start: 201504, end: 2015
  2. LEVETIRACETAM [Suspect]
     Active Substance: LEVETIRACETAM
     Indication: Generalised tonic-clonic seizure
     Dosage: 2500 MG, QD (UP TO 2500 MG)
     Route: 065
     Dates: start: 201504, end: 2015
  3. LEVETIRACETAM [Suspect]
     Active Substance: LEVETIRACETAM
     Dosage: UNK (COMPLETELY TAPERED OVER THE FOLLOWING 7 WEEKS)
     Route: 065
     Dates: start: 2015, end: 2015
  4. CLOBAZAM [Suspect]
     Active Substance: CLOBAZAM
     Indication: Temporal lobe epilepsy
     Dosage: UNK (CBZ WAS THEN ALSO TAPERED OVER A 10-WEEK PERIOD)
     Route: 065
     Dates: start: 2015, end: 2015
  5. CLOBAZAM [Suspect]
     Active Substance: CLOBAZAM
     Indication: Generalised tonic-clonic seizure
     Dosage: 5 MG, QD (TITRATED UP TO 5 MG)
     Route: 065
     Dates: start: 201504, end: 2015
  6. CLOBAZAM [Suspect]
     Active Substance: CLOBAZAM
     Dosage: UNK (TITRATED UP TO 5 MG)
     Route: 065
     Dates: start: 201504, end: 2015
  7. LACOSAMIDE [Suspect]
     Active Substance: LACOSAMIDE
     Indication: Epilepsy
     Dosage: UNK (UP TO 400 MG)
     Route: 065
     Dates: start: 201504, end: 2015
  8. LACOSAMIDE [Suspect]
     Active Substance: LACOSAMIDE
     Indication: Generalised tonic-clonic seizure
     Dosage: 400 MG, QD (UP TO 400 MG)
     Route: 065
     Dates: start: 201504, end: 2015
  9. LACOSAMIDE [Suspect]
     Active Substance: LACOSAMIDE
     Dosage: UNK (LAC WAS PHASED OUT SLOWLY OVER THE FOLLOWING 8 WEEKS)
     Route: 065
     Dates: start: 2015, end: 2015

REACTIONS (3)
  - Automatism epileptic [Recovered/Resolved]
  - Depressed level of consciousness [Recovering/Resolving]
  - Off label use [Unknown]

NARRATIVE: CASE EVENT DATE: 20150101
